FAERS Safety Report 8943774 (Version 1)
Quarter: 2012Q4

REPORT INFORMATION
  Report Type: 
  Country: FR (occurrence: FR)
  Receive Date: 20121203
  Receipt Date: 20121203
  Transmission Date: 20130627
  Serious: Yes (Hospitalization)
  Sender: FDA-Public Use
  Company Number: FR-GLAXOSMITHKLINE-B0846228A

PATIENT
  Age: 67 None
  Sex: Male

DRUGS (8)
  1. ARIXTRA [Suspect]
     Indication: PROPHYLAXIS
     Dosage: 7.5MG Per day
     Route: 058
     Dates: end: 20120804
  2. KEPPRA [Concomitant]
  3. TOPALGIC ( FRANCE ) [Concomitant]
  4. TAHOR [Concomitant]
  5. INEXIUM [Concomitant]
  6. SEROPLEX [Concomitant]
  7. ALPRAZOLAM [Concomitant]
  8. TAXOTERE [Concomitant]

REACTIONS (11)
  - Muscle haemorrhage [Recovered/Resolved]
  - Arthralgia [Unknown]
  - Monoplegia [Unknown]
  - Paraesthesia [Unknown]
  - VIIth nerve paralysis [Unknown]
  - Anaemia [Unknown]
  - Peritoneal haemorrhage [Unknown]
  - Pleural effusion [Unknown]
  - Renal cyst [Unknown]
  - Osteolysis [Unknown]
  - Incorrect drug administration duration [Unknown]
